FAERS Safety Report 12484840 (Version 1)
Quarter: 2016Q2

REPORT INFORMATION
  Report Type: Spontaneous
  Country: US (occurrence: None)
  Receive Date: 20160620
  Receipt Date: 20160620
  Transmission Date: 20160815
  Serious: Yes (Life-Threatening, Other)
  Sender: FDA-Public Use
  Company Number: None

PATIENT
  Age: 29 Year
  Sex: Female
  Weight: 70.31 kg

DRUGS (10)
  1. FLEXERIL [Suspect]
     Active Substance: CYCLOBENZAPRINE HYDROCHLORIDE
     Indication: MUSCLE SPASMS
     Route: 048
     Dates: start: 20160510, end: 20160615
  2. MULTIVITAMIN/MINERAL [Concomitant]
  3. ATENOLOL. [Concomitant]
     Active Substance: ATENOLOL
  4. MELATONIN [Concomitant]
     Active Substance: MELATONIN
  5. RISPERIDONE. [Concomitant]
     Active Substance: RISPERIDONE
  6. BUPROPRION [Concomitant]
     Active Substance: BUPROPION
  7. ADDERAL XR [Concomitant]
  8. ATIVAN [Concomitant]
     Active Substance: LORAZEPAM
  9. FISH OIL [Concomitant]
     Active Substance: FISH OIL
  10. VITAMIN D [Concomitant]
     Active Substance: CHOLECALCIFEROL

REACTIONS (3)
  - Paranoia [None]
  - Derealisation [None]
  - Seizure [None]

NARRATIVE: CASE EVENT DATE: 20160615
